FAERS Safety Report 14603062 (Version 1)
Quarter: 2018Q1

REPORT INFORMATION
  Report Type: Spontaneous
  Country: FR (occurrence: FR)
  Receive Date: 20180306
  Receipt Date: 20180306
  Transmission Date: 20180509
  Serious: Yes (Hospitalization)
  Sender: FDA-Public Use
  Company Number: FR-BAYER-2018-035940

PATIENT
  Age: 77 Year
  Sex: Male
  Weight: 71 kg

DRUGS (15)
  1. PIPERACILLIN [Suspect]
     Active Substance: PIPERACILLIN
     Dosage: UNK
  2. EYLEA [Concomitant]
     Active Substance: AFLIBERCEPT
     Dosage: UNK
     Route: 031
  3. CETIRIZINE HYDROCHLORIDE. [Concomitant]
     Active Substance: CETIRIZINE HYDROCHLORIDE
     Dosage: 20 MG, UNK
     Route: 048
     Dates: start: 20171104
  4. MIDOSTAURIN [Suspect]
     Active Substance: MIDOSTAURIN
     Dosage: UNK
     Route: 042
  5. INFLUVAC [Suspect]
     Active Substance: INFLUENZA VIRUS VACCINE
     Dosage: 1 DF, UNK
     Route: 058
     Dates: start: 20171124, end: 20171124
  6. BACTRIM [Suspect]
     Active Substance: SULFAMETHOXAZOLE\TRIMETHOPRIM
     Dosage: UNK
     Route: 048
  7. TAZOBACTAM [Suspect]
     Active Substance: TAZOBACTAM
     Indication: SYSTEMIC MASTOCYTOSIS
     Dosage: 100 MG, UNK
     Route: 048
     Dates: start: 20171107
  8. ZYVOXID [Suspect]
     Active Substance: LINEZOLID
     Dosage: 1200 MG, UNK
     Route: 042
     Dates: start: 20171214, end: 20171219
  9. RANITIDINE HYDROCHLORIDE. [Concomitant]
     Active Substance: RANITIDINE HYDROCHLORIDE
     Dosage: 450 MG, QD
     Route: 048
     Dates: start: 20171104
  10. NEORECORMON [Concomitant]
     Active Substance: ERYTHROPOIETIN
     Dosage: UNK
     Route: 058
  11. LOVENOX [Concomitant]
     Active Substance: ENOXAPARIN SODIUM
     Dosage: 40 MG, UNK
     Route: 058
     Dates: start: 20171104
  12. CIFLOX [Suspect]
     Active Substance: CIPROFLOXACIN
     Dosage: UNK
     Route: 065
  13. PANTOPRAZOLE [Concomitant]
     Active Substance: PANTOPRAZOLE
     Dosage: 40 MG, QD
     Route: 048
  14. CARDENSIEL [Concomitant]
     Active Substance: BISOPROLOL FUMARATE
     Dosage: 1.25 MG, QD
     Route: 048
  15. TAMIFLU [Suspect]
     Active Substance: OSELTAMIVIR PHOSPHATE
     Dosage: UNK
     Route: 048

REACTIONS (3)
  - Acute kidney injury [Not Recovered/Not Resolved]
  - Proteinuria [Not Recovered/Not Resolved]
  - Glomerulonephritis membranoproliferative [Not Recovered/Not Resolved]

NARRATIVE: CASE EVENT DATE: 20171217
